FAERS Safety Report 7357991-9 (Version None)
Quarter: 2011Q1

REPORT INFORMATION
  Report Type: 
  Country: None (occurrence: None)
  Receive Date: 20110317
  Receipt Date: 20110314
  Transmission Date: 20110831
  Serious: Yes (Hospitalization)
  Sender: FDA-Public Use
  Company Number: MY-ELI_LILLY_AND_COMPANY-MY201103004275

PATIENT
  Sex: Male
  Weight: 70 kg

DRUGS (29)
  1. PRASUGREL HYDROCHLORIDE [Suspect]
     Indication: ACUTE CORONARY SYNDROME
     Dosage: UNK, UNK
     Dates: start: 20100513, end: 20101002
  2. GLYCERYL TRINITRATE [Concomitant]
     Indication: CONGESTIVE CARDIOMYOPATHY
     Dosage: UNK, AS NEEDED
     Dates: start: 20100811
  3. VALSARTAN [Concomitant]
     Indication: PROPHYLAXIS
     Dosage: 40 MG, DAILY (1/D)
     Dates: start: 20100510
  4. DUTASTERIDE [Concomitant]
     Indication: HAEMORRHOIDAL HAEMORRHAGE
     Dates: start: 20110302
  5. IVABRADINE [Concomitant]
     Indication: PROPHYLAXIS
     Dosage: 2.5 MG, 2/D
     Dates: start: 20100512
  6. CONTROLOC [Concomitant]
     Indication: HAEMORRHOIDAL HAEMORRHAGE
     Dates: start: 20100301
  7. FRUSEMIDE [Concomitant]
     Indication: HAEMORRHOIDAL HAEMORRHAGE
     Dates: start: 20110301
  8. LACTULOSE [Concomitant]
     Indication: CONSTIPATION
     Dosage: 15 ML, AS NEEDED
     Dates: start: 20100811
  9. VASTAREL [Concomitant]
     Indication: PROPHYLAXIS
     Dosage: 35 MG, 2/D
     Dates: start: 20100512
  10. BISOLVON [Concomitant]
     Indication: HAEMORRHOIDAL HAEMORRHAGE
     Dates: start: 20110301, end: 20110307
  11. DIOVAN [Concomitant]
     Indication: HAEMORRHOIDAL HAEMORRHAGE
     Dates: start: 20110301
  12. PIRITON [Concomitant]
     Indication: PRURITUS
     Dosage: 4 MG, UNK
     Dates: start: 20100811
  13. DUSPATALIN [Concomitant]
     Indication: HAEMORRHOIDAL HAEMORRHAGE
     Dates: start: 20110302
  14. ASCORBIC ACID [Concomitant]
     Indication: HAEMORRHOIDAL HAEMORRHAGE
     Dates: start: 20110301
  15. PRASUGREL HYDROCHLORIDE [Suspect]
     Dosage: UNK, UNK
     Dates: start: 20101012, end: 20110312
  16. ASPIRIN [Concomitant]
     Indication: ACUTE CORONARY SYNDROME
     Dosage: 300 MG, UNK
     Dates: start: 20100508, end: 20100508
  17. DAFLON [Concomitant]
     Indication: HAEMORRHOIDS
     Dates: start: 20100819
  18. AUGMENTIN '125' [Concomitant]
     Indication: HAEMORRHOIDAL HAEMORRHAGE
     Dates: start: 20110302, end: 20110306
  19. SPIRONOLACTONE [Concomitant]
     Indication: HAEMORRHOIDAL HAEMORRHAGE
     Dates: start: 20110301
  20. ASPIRIN [Concomitant]
     Dosage: 150 MG, UNK
     Dates: start: 20100509
  21. LIDOCAINE [Concomitant]
     Indication: HAEMORRHOIDS
     Dates: start: 20100819
  22. ISORDIL [Concomitant]
     Indication: PROPHYLAXIS
     Dosage: 10 MG, 3/D
     Dates: start: 20100512
  23. METHADON HCL TAB [Concomitant]
     Indication: ABDOMINAL PAIN UPPER
     Dosage: 15 MG, AS NEEDED
     Dates: start: 20100510
  24. PANTOPRAZOLE [Concomitant]
     Indication: PROPHYLAXIS
     Dosage: 40 MG, DAILY (1/D)
     Dates: start: 20100509
  25. LOVASTATIN [Concomitant]
     Indication: PROPHYLAXIS
     Dosage: 40 MG, EACH EVENING
     Dates: start: 20100508
  26. NEXIUM [Concomitant]
     Indication: PROPHYLAXIS
     Dosage: 40 MG, DAILY (1/D)
     Dates: start: 20101011
  27. BENADRYL [Concomitant]
     Indication: COUGH
     Dates: start: 20110204
  28. FOLIC ACID [Concomitant]
     Indication: HAEMORRHOIDAL HAEMORRHAGE
     Dates: start: 20110301
  29. CALCIUM LACTATE [Concomitant]
     Indication: HAEMORRHOIDAL HAEMORRHAGE
     Dates: start: 20110301

REACTIONS (3)
  - LUNG NEOPLASM MALIGNANT [None]
  - METASTASES TO CENTRAL NERVOUS SYSTEM [None]
  - CEREBROVASCULAR ACCIDENT [None]
